FAERS Safety Report 17339477 (Version 1)
Quarter: 2020Q1

REPORT INFORMATION
  Report Type: Spontaneous
  Country: US (occurrence: US)
  Receive Date: 20200128
  Receipt Date: 20200128
  Transmission Date: 20200409
  Serious: No
  Sender: FDA-Public Use
  Company Number: None

PATIENT

DRUGS (1)
  1. LEVOTHYROXANE [Suspect]
     Active Substance: LEVOTHYROXINE

REACTIONS (3)
  - Drug hypersensitivity [None]
  - Hypersensitivity [None]
  - Drug ineffective [None]
